FAERS Safety Report 23202209 (Version 1)
Quarter: 2023Q4

REPORT INFORMATION
  Report Type: Spontaneous
  Country: IN (occurrence: IN)
  Receive Date: 20231120
  Receipt Date: 20231120
  Transmission Date: 20240109
  Serious: Yes (Death, Life-Threatening, Other)
  Sender: FDA-Public Use
  Company Number: IN-SA-2023SA356079

PATIENT
  Age: 43 Year
  Sex: Male

DRUGS (6)
  1. CLOPIDOGREL BISULFATE [Suspect]
     Active Substance: CLOPIDOGREL BISULFATE
     Indication: Antiplatelet therapy
     Dosage: 75 MG, Q6H
  2. ASPIRIN [Suspect]
     Active Substance: ASPIRIN
     Dosage: 75 MG, Q6H
  3. ATORVASTATIN [Suspect]
     Active Substance: ATORVASTATIN
     Dosage: 40 MG, Q6H
  4. HEPARIN [Suspect]
     Active Substance: HEPARIN SODIUM
     Dosage: 5000 UNITS, Q6H
  5. NITROGLYCERIN [Suspect]
     Active Substance: NITROGLYCERIN
     Indication: Chest pain
     Dosage: 2.6 MG, Q6H
  6. STREPTOKINASE [Suspect]
     Active Substance: STREPTOKINASE
     Dosage: 1.5 MILLION UNITS, Q6H
     Route: 042

REACTIONS (7)
  - Haemorrhage intracranial [Fatal]
  - Retroperitoneal haemorrhage [Fatal]
  - Cardiac arrest [Fatal]
  - Apnoea [Fatal]
  - Depressed level of consciousness [Unknown]
  - Vomiting [Unknown]
  - Asthenia [Unknown]
